FAERS Safety Report 9529811 (Version 3)
Quarter: 2015Q1

REPORT INFORMATION
  Report Type: Report from Study
  Country: US (occurrence: US)
  Receive Date: 20130917
  Receipt Date: 20150128
  Transmission Date: 20150721
  Serious: Yes (Hospitalization)
  Sender: FDA-Public Use
  Company Number: US-ACTELION-A-NJ2013-88340

PATIENT
  Age: 51 Year
  Sex: Female

DRUGS (2)
  1. TRACLEER [Suspect]
     Active Substance: BOSENTAN\BOSENTAN MONOHYDRATE
     Indication: PULMONARY ARTERIAL HYPERTENSION
     Dosage: UNK
     Route: 048
  2. FLOLAN [Suspect]
     Active Substance: EPOPROSTENOL SODIUM
     Indication: PRODUCT USED FOR UNKNOWN INDICATION
     Route: 065

REACTIONS (9)
  - Blood creatinine increased [Unknown]
  - Condition aggravated [Unknown]
  - Hypokalaemia [Unknown]
  - Pruritus [Unknown]
  - Cardiac failure [Unknown]
  - Ascites [Unknown]
  - Nausea [Unknown]
  - Diarrhoea [Unknown]
  - Hypotension [Unknown]
